FAERS Safety Report 6063635-9 (Version None)
Quarter: 2009Q1

REPORT INFORMATION
  Report Type: 
  Country: None (occurrence: None)
  Receive Date: 20090129
  Receipt Date: 20090119
  Transmission Date: 20090719
  Serious: Yes (Other)
  Sender: FDA-Public Use
  Company Number: US-1167977

PATIENT
  Age: 57 Year
  Sex: Female
  Weight: 113.3993 kg

DRUGS (6)
  1. NEVANAC [Suspect]
     Indication: CATARACT OPERATION
     Dosage: 1 GTT TID OD OPHTHALMIC
     Route: 047
     Dates: start: 20081014, end: 20081021
  2. PLAQUENIL [Concomitant]
  3. SYNTHROID [Concomitant]
  4. ATENOLOL [Concomitant]
  5. LEXAPRO [Concomitant]
  6. FOSAMAX [Concomitant]

REACTIONS (6)
  - CORNEAL SCAR [None]
  - CORNEAL THINNING [None]
  - EYE PAIN [None]
  - OCULAR HYPERAEMIA [None]
  - PHOTOPHOBIA [None]
  - ULCERATIVE KERATITIS [None]
